FAERS Safety Report 10761468 (Version 1)
Quarter: 2015Q1

REPORT INFORMATION
  Report Type: Spontaneous
  Country: GR (occurrence: GR)
  Receive Date: 20150204
  Receipt Date: 20150204
  Transmission Date: 20150721
  Serious: Yes (Other)
  Sender: FDA-Public Use
  Company Number: GR-ASTELLAS-2015US003058

PATIENT
  Age: 61 Year
  Sex: Male

DRUGS (3)
  1. SALOSPIR [Concomitant]
     Active Substance: ASPIRIN\CAFFEINE
     Indication: THROMBOSIS PROPHYLAXIS
     Route: 048
  2. ENTACT [Concomitant]
     Active Substance: ESCITALOPRAM OXALATE
     Indication: DEPRESSION
     Route: 048
  3. BETMIGA [Suspect]
     Active Substance: MIRABEGRON
     Indication: NEUROGENIC BLADDER
     Route: 048
     Dates: end: 201501

REACTIONS (2)
  - Urinary bladder haemorrhage [Recovering/Resolving]
  - Product use issue [Unknown]
